FAERS Safety Report 11037482 (Version 1)
Quarter: 2015Q2

REPORT INFORMATION
  Report Type: Spontaneous
  Country: KR (occurrence: KR)
  Receive Date: 20150416
  Receipt Date: 20150416
  Transmission Date: 20150821
  Serious: Yes (Life-Threatening, Hospitalization)
  Sender: FDA-Public Use
  Company Number: KR-MYLANLABS-2015M1012624

PATIENT

DRUGS (3)
  1. IFOSFAMIDE. [Suspect]
     Active Substance: IFOSFAMIDE
     Indication: THYMOMA MALIGNANT
     Dosage: 2500 MG/M2 OVER 2 HOURS ON DAYS 1-2
     Route: 041
     Dates: start: 20120418
  2. PACLITAXEL. [Suspect]
     Active Substance: PACLITAXEL
     Indication: THYMOMA MALIGNANT
     Dosage: 175 MG/M2 OVER 3 HOURS ON DAY 1
     Route: 041
     Dates: start: 20120418
  3. MESNA. [Suspect]
     Active Substance: MESNA
     Indication: THYMOMA MALIGNANT
     Dosage: 500 MG/M2 OVER 15 MINUTES ON DAYS 1-2
     Route: 041
     Dates: start: 20120418

REACTIONS (1)
  - Tumour lysis syndrome [Recovered/Resolved]
